FAERS Safety Report 9601939 (Version 1)
Quarter: 2013Q4

REPORT INFORMATION
  Report Type: Spontaneous
  Country: CA (occurrence: CA)
  Receive Date: 20131007
  Receipt Date: 20131007
  Transmission Date: 20140711
  Serious: Yes (Hospitalization, Other)
  Sender: FDA-Public Use
  Company Number: CA-JNJFOC-20130915489

PATIENT
  Age: 19 Year
  Sex: Male

DRUGS (4)
  1. ACETAMINOPHEN WITH CODEINE PHOSPHATE [Suspect]
     Indication: PROCEDURAL PAIN
     Route: 065
  2. ERYTHROMYCIN [Interacting]
     Indication: PROPHYLAXIS
     Dosage: 2 HOURS BEFORE THE PROCEDURE.
     Route: 048
  3. ERYTHROMYCIN [Interacting]
     Indication: PROPHYLAXIS
     Dosage: 6 HOURS AFTER THE INITIAL DOSE.
     Route: 048
  4. CAFFEINE [Interacting]
     Indication: PRODUCT USED FOR UNKNOWN INDICATION
     Route: 048

REACTIONS (2)
  - Mania [Recovered/Resolved]
  - Drug interaction [Recovered/Resolved]
